FAERS Safety Report 9774977 (Version 1)
Quarter: 2013Q4

REPORT INFORMATION
  Report Type: Spontaneous
  Country: JP (occurrence: JP)
  Receive Date: 20131220
  Receipt Date: 20131220
  Transmission Date: 20140711
  Serious: Yes (Hospitalization)
  Sender: FDA-Public Use
  Company Number: JP-ASTRAZENECA-2013SE90961

PATIENT
  Age: 35 Year
  Sex: Female
  Weight: 157 kg

DRUGS (1)
  1. MARCAIN SPINAL [Suspect]
     Indication: SPINAL ANAESTHESIA
     Route: 029

REACTIONS (2)
  - Subdural haematoma [Recovered/Resolved]
  - Post lumbar puncture syndrome [Recovered/Resolved]
